FAERS Safety Report 4445071-1 (Version None)
Quarter: 2004Q3

REPORT INFORMATION
  Report Type: 
  Country: None (occurrence: None)
  Receive Date: 20040907
  Receipt Date: 20040823
  Transmission Date: 20050211
  Serious: Yes (Other)
  Sender: FDA-Public Use
  Company Number: 2004223821JP

PATIENT
  Age: 46 Year
  Sex: Female

DRUGS (5)
  1. EPIRUBICIN [Suspect]
     Indication: BREAST CANCER
     Dosage: 110 MG, QD, IV
     Route: 042
     Dates: start: 20040510
  2. ENDOXAN [Concomitant]
  3. FLUOROURACIL [Concomitant]
  4. SEROTONE (AZASETRON HYDROCHLORIDE) [Concomitant]
  5. DECADRON [Concomitant]

REACTIONS (1)
  - ANGIOSCLEROSIS [None]
